FAERS Safety Report 15661444 (Version 2)
Quarter: 2019Q1

REPORT INFORMATION
  Report Type: Report from Study
  Country: PK (occurrence: PK)
  Receive Date: 20181127
  Receipt Date: 20190112
  Transmission Date: 20190417
  Serious: Yes (Hospitalization, Other)
  Sender: FDA-Public Use
  Company Number: PHHY2018PK161364

PATIENT
  Age: 41 Year
  Sex: Female
  Weight: 120 kg

DRUGS (1)
  1. KISQALI [Suspect]
     Active Substance: RIBOCICLIB
     Indication: BREAST CANCER METASTATIC
     Dosage: 600 MG, QD
     Route: 048
     Dates: start: 20181008, end: 20181230

REACTIONS (11)
  - Muscle spasms [Unknown]
  - Partial seizures [Unknown]
  - Head banging [Unknown]
  - Dyskinesia [Unknown]
  - Malignant neoplasm progression [Not Recovered/Not Resolved]
  - Somnolence [Unknown]
  - Feeding disorder [Not Recovered/Not Resolved]
  - Muscle rigidity [Unknown]
  - Loss of consciousness [Unknown]
  - Metastases to central nervous system [Unknown]
  - Breast cancer metastatic [Not Recovered/Not Resolved]

NARRATIVE: CASE EVENT DATE: 20181015
